FAERS Safety Report 24253118 (Version 1)
Quarter: 2024Q3

REPORT INFORMATION
  Report Type: Spontaneous
  Country: US (occurrence: None)
  Receive Date: 20240824
  Receipt Date: 20240824
  Transmission Date: 20241016
  Serious: No
  Sender: Public
  Company Number: None

PATIENT

DRUGS (1)
  1. FEMARA [Suspect]
     Active Substance: LETROZOLE
     Dates: start: 20231003, end: 20240812

REACTIONS (4)
  - Chills [None]
  - Hot flush [None]
  - Nausea [None]
  - Pruritus [None]

NARRATIVE: CASE EVENT DATE: 20240812
